FAERS Safety Report 22657376 (Version 2)
Quarter: 2024Q1

REPORT INFORMATION
  Report Type: Report from Study
  Country: PH (occurrence: PH)
  Receive Date: 20230630
  Receipt Date: 20240216
  Transmission Date: 20240410
  Serious: Yes (Death, Life-Threatening)
  Sender: FDA-Public Use
  Company Number: PH-002147023-NVSC2023PH148827

PATIENT
  Sex: Male

DRUGS (1)
  1. ENTRESTO [Suspect]
     Active Substance: SACUBITRIL\VALSARTAN
     Indication: Cardiac failure
     Dosage: 50 MG, Q12
     Route: 065
     Dates: start: 2020

REACTIONS (3)
  - Septic shock [Fatal]
  - Pneumonia [Fatal]
  - Urinary tract infection [Fatal]
